FAERS Safety Report 6683913-X (Version None)
Quarter: 2010Q2

REPORT INFORMATION
  Report Type: 
  Country: None (occurrence: None)
  Receive Date: 20100416
  Receipt Date: 20100406
  Transmission Date: 20101027
  Serious: Yes (Other)
  Sender: FDA-Public Use
  Company Number: DE-PFIZER INC-2010032928

PATIENT
  Age: 43 Year
  Sex: Female
  Weight: 77 kg

DRUGS (2)
  1. SORTIS [Suspect]
     Indication: HYPERCHOLESTEROLAEMIA
     Dosage: 10 MG/DAY
     Route: 048
  2. SORTIS [Suspect]
     Indication: DYSLIPIDAEMIA

REACTIONS (2)
  - MUSCLE SPASMS [None]
  - WITHDRAWAL SYNDROME [None]
